FAERS Safety Report 16610511 (Version 1)
Quarter: 2019Q3

REPORT INFORMATION
  Report Type: Spontaneous
  Country: US (occurrence: US)
  Receive Date: 20190722
  Receipt Date: 20190722
  Transmission Date: 20191004
  Serious: No
  Sender: FDA-Public Use
  Company Number: US-OSMOTICA_PHARMACEUTICAL_US_LLC-POI0573201800263

PATIENT
  Sex: Female
  Weight: 54.48 kg

DRUGS (4)
  1. DIVIGEL [Suspect]
     Active Substance: ESTRADIOL
     Indication: MENOPAUSE
     Route: 062
     Dates: start: 2017, end: 2017
  2. DIVIGEL [Suspect]
     Active Substance: ESTRADIOL
     Route: 062
     Dates: start: 2017, end: 2017
  3. DEXILANT [Concomitant]
     Active Substance: DEXLANSOPRAZOLE
     Indication: GASTROINTESTINAL DISORDER
  4. DIVIGEL [Suspect]
     Active Substance: ESTRADIOL
     Route: 062
     Dates: start: 2017

REACTIONS (2)
  - Drug ineffective [Recovered/Resolved]
  - Alopecia [Recovering/Resolving]

NARRATIVE: CASE EVENT DATE: 2017
